FAERS Safety Report 24031166 (Version 1)
Quarter: 2024Q2

REPORT INFORMATION
  Report Type: Report from Study
  Country: US (occurrence: US)
  Receive Date: 20240628
  Receipt Date: 20240628
  Transmission Date: 20240716
  Serious: Yes (Hospitalization, Other)
  Sender: FDA-Public Use
  Company Number: US-ABBVIE-5817655

PATIENT
  Age: 70 Year
  Sex: Female

DRUGS (1)
  1. SKYRIZI [Suspect]
     Active Substance: RISANKIZUMAB-RZAA
     Indication: Psoriatic arthropathy
     Route: 058
     Dates: start: 20220902

REACTIONS (6)
  - Knee arthroplasty [Not Recovered/Not Resolved]
  - Intestinal obstruction [Recovering/Resolving]
  - Weight decreased [Not Recovered/Not Resolved]
  - Feeding disorder [Unknown]
  - Vomiting [Unknown]
  - Gastric operation [Recovering/Resolving]

NARRATIVE: CASE EVENT DATE: 20240429
